FAERS Safety Report 14179440 (Version 2)
Quarter: 2018Q1

REPORT INFORMATION
  Report Type: Report from Study
  Country: None (occurrence: IL)
  Receive Date: 20171110
  Receipt Date: 20180118
  Transmission Date: 20180508
  Serious: No
  Sender: FDA-Public Use
  Company Number: IL-ABBVIE-17S-082-2157098-00

PATIENT
  Age: 65 Year
  Sex: Male
  Weight: 69 kg

DRUGS (3)
  1. VIEKIRAX [Suspect]
     Active Substance: OMBITASVIR\PARITAPREVIR\RITONAVIR
     Indication: HEPATITIS C
     Dosage: 2 TABS IN THE MORNING
     Route: 048
     Dates: start: 20170626, end: 20170924
  2. EXVIERA [Suspect]
     Active Substance: DASABUVIR
     Indication: HEPATITIS C
     Dosage: 1 TAB IN THE MORNING+ 1 TAB IN THE EVENING
     Route: 048
     Dates: start: 20170626, end: 20170924
  3. TOPIRAMA [Concomitant]
     Indication: PRODUCT USED FOR UNKNOWN INDICATION
     Route: 065

REACTIONS (1)
  - Renal colic [Unknown]

NARRATIVE: CASE EVENT DATE: 20170803
